FAERS Safety Report 6206510-9 (Version None)
Quarter: 2009Q2

REPORT INFORMATION
  Report Type: 
  Country: None (occurrence: None)
  Receive Date: 20090528
  Receipt Date: 20090518
  Transmission Date: 20091009
  Serious: Yes (Hospitalization, Disabling)
  Sender: FDA-Public Use
  Company Number: GB-AMGEN-US348323

PATIENT
  Age: 63 Year
  Sex: Male

DRUGS (6)
  1. ENBREL [Suspect]
     Indication: PSORIATIC ARTHROPATHY
     Route: 058
     Dates: start: 20060725, end: 20090428
  2. TRAMADOL HYDROCHLORIDE [Concomitant]
     Dosage: UNKNOWN
     Route: 065
  3. BENDROFLUAZIDE [Concomitant]
     Dosage: UNKNOWN
     Route: 065
  4. CANDESARTAN CILEXETIL [Concomitant]
     Dosage: UNKNOWN
     Route: 065
  5. AMLODIPINE [Concomitant]
     Dosage: UNKNOWN
     Route: 065
  6. ATENOLOL [Concomitant]
     Dosage: UNKNOWN
     Route: 065

REACTIONS (2)
  - NEUTROPENIA [None]
  - POLYNEUROPATHY [None]
